FAERS Safety Report 4915847-2 (Version None)
Quarter: 2006Q1

REPORT INFORMATION
  Report Type: 
  Country: None (occurrence: None)
  Receive Date: 20060214
  Receipt Date: 20060119
  Transmission Date: 20060701
  Serious: Yes (Hospitalization)
  Sender: FDA-Public Use
  Company Number: 1988

PATIENT
  Sex: Female

DRUGS (3)
  1. ACCUTANE [Suspect]
     Dosage: PO
     Route: 048
     Dates: start: 20050811, end: 20050911
  2. AMNESTEEM [Suspect]
     Dosage: PO
     Route: 048
     Dates: start: 20050912
  3. MEDICINES FOR THE TREATMENT OF LUPUS [Concomitant]

REACTIONS (3)
  - DEPRESSION [None]
  - MYCOTIC ALLERGY [None]
  - SUICIDE ATTEMPT [None]
